FAERS Safety Report 21294465 (Version 4)
Quarter: 2022Q4

REPORT INFORMATION
  Report Type: Report from Study
  Country: PL (occurrence: PL)
  Receive Date: 20220905
  Receipt Date: 20221230
  Transmission Date: 20230112
  Serious: Yes (Death, Hospitalization)
  Sender: FDA-Public Use
  Company Number: PL-EXELIXIS-XL18422051268

PATIENT

DRUGS (10)
  1. CABOZANTINIB [Suspect]
     Active Substance: CABOZANTINIB
     Indication: Metastatic renal cell carcinoma
     Dosage: 60 MG, QD
     Route: 048
     Dates: start: 20210331
  2. CABOZANTINIB [Suspect]
     Active Substance: CABOZANTINIB
     Dosage: 20 MG
     Route: 048
     Dates: end: 20220419
  3. ATEZOLIZUMAB [Suspect]
     Active Substance: ATEZOLIZUMAB
     Indication: Metastatic renal cell carcinoma
     Dosage: 1200 MG, Q3WEEKS
     Route: 041
     Dates: start: 20210331, end: 20220419
  4. IBUPROFEN [Concomitant]
     Active Substance: IBUPROFEN
     Indication: Pain
     Dosage: 1 TABLET (1 IN 1 AS REQUIRED)
     Route: 048
     Dates: start: 20220307
  5. OXYCONTIN [Concomitant]
     Active Substance: OXYCODONE HYDROCHLORIDE
     Indication: Abdominal pain upper
     Dosage: 10 MG, BID
     Route: 048
     Dates: start: 20220323
  6. Naxalgan [Concomitant]
     Indication: Pain
     Dosage: 75 MG, QD
     Route: 048
     Dates: start: 20220323
  7. LEVOFLOXACIN [Concomitant]
     Active Substance: LEVOFLOXACIN
     Indication: Hypothyroidism
     Dosage: 150 UG, QD
     Route: 048
     Dates: start: 20211221
  8. Thiocodin [Concomitant]
     Indication: Cough
     Dosage: 2 TABLET (1 IN 1 D) AURICULAR
     Dates: start: 20220119
  9. MEGESTROL ACETATE [Concomitant]
     Active Substance: MEGESTROL ACETATE
     Indication: Decreased appetite
     Dosage: 20 ML, QD
     Route: 048
     Dates: start: 20220119
  10. DEXKETOPROFEN\TRAMADOL [Concomitant]
     Active Substance: DEXKETOPROFEN\TRAMADOL
     Indication: Abdominal pain upper
     Dosage: 25 MG, QD
     Route: 048
     Dates: start: 20220221

REACTIONS (2)
  - Death [Fatal]
  - Gastrointestinal haemorrhage [Recovered/Resolved]

NARRATIVE: CASE EVENT DATE: 20220413
